FAERS Safety Report 4568454-8 (Version None)
Quarter: 2005Q1

REPORT INFORMATION
  Report Type: 
  Country: None (occurrence: None)
  Receive Date: 20050131
  Receipt Date: 20050125
  Transmission Date: 20050727
  Serious: Yes (Death, Life-Threatening, Hospitalization)
  Sender: FDA-Public Use
  Company Number: TCI2004A04763

PATIENT
  Age: 82 Year
  Sex: Male

DRUGS (9)
  1. ACTOS [Suspect]
     Indication: DIABETES MELLITUS NON-INSULIN-DEPENDENT
     Dosage: 15 MG (15 MG, 1 IN 1 D)
     Route: 048
     Dates: start: 20020627, end: 20030508
  2. BLOPRESS TABLETS 8 (CANDESARTAN CILEXETIL) [Concomitant]
  3. TENORMIN [Concomitant]
  4. ASPIRIN [Concomitant]
  5. HARNAL (TAMSULOSIN HYDROCHLORIDE) [Concomitant]
  6. EUGLUCON (GLIBENCLAMIDE) [Concomitant]
  7. CHLORMADINONE ACETATE TAB [Concomitant]
  8. ISOSORBIDE MONONITRATE [Concomitant]
  9. SENNOSIDE (SENNOSIDE A+B) [Concomitant]

REACTIONS (22)
  - ACUTE MYOCARDIAL INFARCTION [None]
  - BLOOD CREATINE PHOSPHOKINASE INCREASED [None]
  - BUNDLE BRANCH BLOCK LEFT [None]
  - CARDIAC ARREST [None]
  - CARDIOGENIC SHOCK [None]
  - CARDIOMEGALY [None]
  - CYANOSIS [None]
  - DISSEMINATED INTRAVASCULAR COAGULATION [None]
  - ELECTROCARDIOGRAM ST SEGMENT ABNORMAL [None]
  - ENTEROCOLITIS [None]
  - HAEMOPTYSIS [None]
  - HEPATIC FUNCTION ABNORMAL [None]
  - JAUNDICE [None]
  - OEDEMA PERIPHERAL [None]
  - PERIPHERAL COLDNESS [None]
  - PRODUCTIVE COUGH [None]
  - PULMONARY CONGESTION [None]
  - RALES [None]
  - RENAL FAILURE ACUTE [None]
  - SPUTUM PURULENT [None]
  - TREATMENT NONCOMPLIANCE [None]
  - URINARY RETENTION [None]
